FAERS Safety Report 11201822 (Version 1)
Quarter: 2015Q2

REPORT INFORMATION
  Report Type: Spontaneous
  Country: US (occurrence: None)
  Receive Date: 20150617
  Receipt Date: 20150617
  Transmission Date: 20150821
  Serious: Yes (Hospitalization, Other)
  Sender: FDA-Public Use
  Company Number: UCM201504-000250

PATIENT
  Sex: Female
  Weight: 52.16 kg

DRUGS (3)
  1. ATIVAN (LORAZEPAM) (LORAZEPAM) [Concomitant]
  2. LAMOTRIGINE. [Suspect]
     Active Substance: LAMOTRIGINE
     Indication: EPILEPSY
     Dates: start: 201503, end: 20150414
  3. LORAZEPAM (LORAZEPAM) (LORAZEPAM) [Suspect]
     Active Substance: LORAZEPAM

REACTIONS (21)
  - Diarrhoea [None]
  - Back pain [None]
  - Abnormal behaviour [None]
  - Paranoia [None]
  - Movement disorder [None]
  - Gallbladder disorder [None]
  - Loss of control of legs [None]
  - Anger [None]
  - Crying [None]
  - Fear [None]
  - Aggression [None]
  - Mania [None]
  - Hepatic function abnormal [None]
  - Extrasystoles [None]
  - Malaise [None]
  - Dysstasia [None]
  - Weight decreased [None]
  - Vomiting [None]
  - Agitation [None]
  - Mental disorder [None]
  - Mood altered [None]
